FAERS Safety Report 7673053-5 (Version None)
Quarter: 2011Q3

REPORT INFORMATION
  Report Type: 
  Country: None (occurrence: None)
  Receive Date: 20110809
  Receipt Date: 20110804
  Transmission Date: 20111222
  Serious: Yes (Death, Hospitalization)
  Sender: FDA-Public Use
  Company Number: JP-ASTRAZENECA-2011SE33946

PATIENT
  Age: 78 Year
  Sex: Male
  Weight: 51 kg

DRUGS (17)
  1. LOXOPROFEN [Concomitant]
     Indication: CANCER PAIN
     Route: 048
     Dates: start: 20110203
  2. REBAMIPIDE [Concomitant]
     Indication: GASTROINTESTINAL DISORDER
     Route: 048
     Dates: start: 20110203
  3. AMPICILLIN SODIUM/SULBACTAM SODIUM [Concomitant]
     Indication: PNEUMONIA
     Route: 042
     Dates: start: 20110325, end: 20110401
  4. MAGMITT [Concomitant]
     Indication: CONSTIPATION PROPHYLAXIS
     Route: 048
     Dates: start: 20110217
  5. URSO 250 [Concomitant]
     Indication: LIVER DISORDER
     Route: 048
     Dates: start: 20110314, end: 20110325
  6. METHYLPREDNISOLONE SODIUM SUCCINATE [Concomitant]
     Indication: PNEUMONIA
     Route: 042
     Dates: start: 20110527
  7. VOLTAREN [Concomitant]
     Indication: CANCER PAIN
     Route: 048
     Dates: start: 20110210, end: 20110216
  8. BIOFERMIN [Concomitant]
     Indication: PROPHYLAXIS AGAINST DIARRHOEA
     Route: 048
     Dates: start: 20110203
  9. OXINORM [Concomitant]
     Indication: CANCER PAIN
     Route: 048
     Dates: start: 20110217
  10. AMPICILLIN SODIUM/SULBACTAM SODIUM [Concomitant]
     Route: 042
     Dates: start: 20110428, end: 20110509
  11. LANSOPRAZOLE [Concomitant]
     Indication: GASTRITIS
     Route: 048
     Dates: start: 20110506
  12. IRESSA [Suspect]
     Indication: LUNG ADENOCARCINOMA
     Route: 048
     Dates: start: 20110128, end: 20110325
  13. OXYCONTIN [Concomitant]
     Indication: CANCER PAIN
     Route: 048
     Dates: start: 20110222
  14. PROCHLORPERAZINE [Concomitant]
     Indication: NAUSEA
     Route: 048
     Dates: start: 20110217
  15. LENDORMIN [Concomitant]
     Indication: INSOMNIA
     Route: 048
     Dates: start: 20110224
  16. LEVOFLOXACIN [Concomitant]
     Indication: PNEUMONIA
     Route: 048
     Dates: start: 20110328, end: 20110402
  17. MEROPENEM [Concomitant]
     Indication: PNEUMONIA
     Route: 042
     Dates: start: 20110527

REACTIONS (3)
  - HEPATIC FUNCTION ABNORMAL [None]
  - LUNG DISORDER [None]
  - PNEUMONIA [None]
